FAERS Safety Report 24720241 (Version 2)
Quarter: 2024Q4

REPORT INFORMATION
  Report Type: Spontaneous
  Country: US (occurrence: US)
  Receive Date: 20241211
  Receipt Date: 20241231
  Transmission Date: 20250115
  Serious: No
  Sender: MACLEODS
  Company Number: US-MACLEODS PHARMA-MAC2024050635

PATIENT

DRUGS (3)
  1. HYDROCHLOROTHIAZIDE\VALSARTAN [Suspect]
     Active Substance: HYDROCHLOROTHIAZIDE\VALSARTAN
     Indication: Blood pressure measurement
     Dosage: QD, 1 TABLET PER DAY USUALLY IN THE MORNING (NDC: 33342-078-10)
     Route: 065
  2. HYDROCHLOROTHIAZIDE\VALSARTAN [Suspect]
     Active Substance: HYDROCHLOROTHIAZIDE\VALSARTAN
     Route: 065
  3. AMLODIPINE [Concomitant]
     Active Substance: AMLODIPINE BESYLATE
     Indication: Blood pressure measurement
     Route: 065

REACTIONS (3)
  - Abdominal discomfort [Unknown]
  - Eructation [Unknown]
  - Product taste abnormal [Unknown]
